FAERS Safety Report 8849876 (Version 1)
Quarter: 2012Q4

REPORT INFORMATION
  Report Type: 
  Country: US (occurrence: US)
  Receive Date: 20121019
  Receipt Date: 20121019
  Transmission Date: 20130627
  Serious: Yes (Hospitalization)
  Sender: FDA-Public Use
  Company Number: US-BRISTOL-MYERS SQUIBB COMPANY-17026337

PATIENT
  Age: 85 Year
  Sex: Female

DRUGS (8)
  1. WARFARIN SODIUM [Suspect]
     Dosage: discontinued then restarted
  2. CEFTAROLINE FOSAMIL [Interacting]
     Indication: CELLULITIS
     Route: 042
  3. ACETYLSALICYLIC ACID [Suspect]
  4. CARVEDILOL [Concomitant]
  5. SIMVASTATIN [Concomitant]
     Dosage: at bed time
  6. OMEPRAZOLE [Concomitant]
  7. VENLAFAXINE HYDROCHLORIDE [Concomitant]
  8. ANASTROZOLE [Concomitant]

REACTIONS (3)
  - Haemarthrosis [Recovering/Resolving]
  - International normalised ratio increased [Recovering/Resolving]
  - Drug interaction [Unknown]
